FAERS Safety Report 15318517 (Version 1)
Quarter: 2018Q3

REPORT INFORMATION
  Report Type: Spontaneous
  Country: US (occurrence: US)
  Receive Date: 20180817
  Receipt Date: 20180817
  Transmission Date: 20181010
  Serious: No
  Sender: FDA-Public Use
  Company Number: None

PATIENT
  Age: 73 Year
  Sex: Female
  Weight: 49.59 kg

DRUGS (5)
  1. CAPECITABINE. [Suspect]
     Active Substance: CAPECITABINE
     Indication: PANCREATIC CARCINOMA
     Route: 048
     Dates: start: 20180521, end: 20180813
  2. VITAMIN D [Concomitant]
     Active Substance: CHOLECALCIFEROL
  3. FOSAMAX [Concomitant]
     Active Substance: ALENDRONATE SODIUM
  4. GABAPENTIN. [Concomitant]
     Active Substance: GABAPENTIN
  5. PAROXETINE. [Concomitant]
     Active Substance: PAROXETINE

REACTIONS (1)
  - Disease progression [None]

NARRATIVE: CASE EVENT DATE: 20180813
